FAERS Safety Report 5213651-1 (Version None)
Quarter: 2007Q1

REPORT INFORMATION
  Report Type: 
  Country: None (occurrence: None)
  Receive Date: 20070119
  Receipt Date: 20070108
  Transmission Date: 20070707
  Serious: Yes (Hospitalization)
  Sender: FDA-Public Use
  Company Number: FR-PFIZER INC-2007003832

PATIENT
  Age: 43 Year
  Sex: Female

DRUGS (11)
  1. ATARAX [Suspect]
     Indication: ANXIETY
     Route: 048
  2. THERALENE [Suspect]
     Indication: SLEEP DISORDER
     Dosage: DAILY DOSE:40DROP
     Route: 048
  3. NORSET [Suspect]
     Indication: DYSTHYMIC DISORDER
     Dosage: DAILY DOSE:15MG
     Route: 048
  4. GUTRON [Suspect]
     Indication: HYPOTENSION
     Dosage: DAILY DOSE:15MG
     Route: 048
  5. SUBUTEX [Suspect]
     Indication: DRUG TOXICITY
     Dosage: DAILY DOSE:2MG
     Route: 048
  6. ZYPREXA [Suspect]
     Indication: PSYCHOTIC DISORDER
     Dosage: DAILY DOSE:10MG
     Route: 048
  7. LEVOTHYROXINE SODIUM [Concomitant]
  8. DIAZEPAM [Concomitant]
  9. DIFFU K [Concomitant]
  10. GAVISCON [Concomitant]
  11. PARACETAMOL [Concomitant]

REACTIONS (2)
  - CONSTIPATION [None]
  - URINARY RETENTION [None]
